FAERS Safety Report 16711412 (Version 2)
Quarter: 2019Q3

REPORT INFORMATION
  Report Type: Spontaneous
  Country: US (occurrence: US)
  Receive Date: 20190816
  Receipt Date: 20190912
  Transmission Date: 20191004
  Serious: No
  Sender: FDA-Public Use
  Company Number: US-SA-2019SA219957

PATIENT
  Age: 35 Year
  Sex: Male

DRUGS (10)
  1. AMPHOTERICIN B. [Concomitant]
     Active Substance: AMPHOTERICIN B
  2. PULMICORT FLEXHALER [Concomitant]
     Active Substance: BUDESONIDE
  3. HYDROCODONE/ACETAMINOPHEN [Concomitant]
     Active Substance: ACETAMINOPHEN\HYDROCODONE
  4. AZELASTINE HCL [Concomitant]
     Active Substance: AZELASTINE HYDROCHLORIDE
  5. PREDNISONE. [Concomitant]
     Active Substance: PREDNISONE
  6. BUDESONIDE. [Concomitant]
     Active Substance: BUDESONIDE
  7. DUPIXENT [Suspect]
     Active Substance: DUPILUMAB
     Indication: DERMATITIS ATOPIC
     Dosage: 300 MG, QOW
     Route: 058
     Dates: start: 20190701
  8. SULFAMETHOXAZOLE;TRIMETHOPRIM [Concomitant]
     Active Substance: SULFAMETHOXAZOLE\TRIMETHOPRIM
  9. AMOXICILLIN+CLAVULANIC ACID [AMOXICILLIN SODIUM;CLAVULANATE POTASSIUM] [Concomitant]
  10. GENTAMICIN [GENTAMICIN SULFATE] [Concomitant]

REACTIONS (2)
  - Nasal polyps [Unknown]
  - Fatigue [Unknown]
